FAERS Safety Report 19212103 (Version 1)
Quarter: 2021Q2

REPORT INFORMATION
  Report Type: Spontaneous
  Country: FR (occurrence: FR)
  Receive Date: 20210504
  Receipt Date: 20210504
  Transmission Date: 20210717
  Serious: Yes (Hospitalization)
  Sender: FDA-Public Use
  Company Number: FR-009507513-2104FRA008103

PATIENT
  Age: 78 Year
  Sex: Male
  Weight: 63 kg

DRUGS (10)
  1. RABEPRAZOLE SODIUM. [Concomitant]
     Active Substance: RABEPRAZOLE SODIUM
  2. NEBIVOLOL. [Concomitant]
     Active Substance: NEBIVOLOL
  3. TRAMADOL HYDROCHLORIDE. [Concomitant]
     Active Substance: TRAMADOL HYDROCHLORIDE
  4. RAMIPRIL. [Concomitant]
     Active Substance: RAMIPRIL
  5. SERETIDE [Concomitant]
     Active Substance: FLUTICASONE PROPIONATE\SALMETEROL XINAFOATE
  6. KARDEGIC [Concomitant]
     Active Substance: ASPIRIN DL-LYSINE
  7. HYDROCHLOROTHIAZIDE. [Concomitant]
     Active Substance: HYDROCHLOROTHIAZIDE
  8. KEYTRUDA [Suspect]
     Active Substance: PEMBROLIZUMAB
     Indication: CHOROID MELANOMA
     Dosage: CYCLICAL (INTRAVENOUS OTHERWISE NOT SPECIFIED)
     Route: 042
     Dates: start: 20200316
  9. ATORVASTATIN [Concomitant]
     Active Substance: ATORVASTATIN
  10. ULTIBRO [Concomitant]
     Active Substance: GLYCOPYRRONIUM\INDACATEROL

REACTIONS (1)
  - Eosinophilic fasciitis [Not Recovered/Not Resolved]

NARRATIVE: CASE EVENT DATE: 202011
